FAERS Safety Report 18764289 (Version 2)
Quarter: 2021Q1

REPORT INFORMATION
  Report Type: Spontaneous
  Country: US (occurrence: US)
  Receive Date: 20210120
  Receipt Date: 20210305
  Transmission Date: 20210419
  Serious: No
  Sender: FDA-Public Use
  Company Number: US-ASTRAZENECA-2021A005521

PATIENT
  Sex: Female
  Weight: 59 kg

DRUGS (1)
  1. BEVESPI AEROSPHERE [Suspect]
     Active Substance: FORMOTEROL FUMARATE\GLYCOPYRROLATE
     Indication: CHRONIC OBSTRUCTIVE PULMONARY DISEASE
     Dosage: 9MCG?4.8MCG 2 PUFFS,TWO TIMES A DAY
     Route: 055
     Dates: start: 202011

REACTIONS (5)
  - Drug dose omission by device [Unknown]
  - Product packaging quantity issue [Unknown]
  - Insomnia [Recovering/Resolving]
  - Cough [Recovering/Resolving]
  - Device ineffective [Recovering/Resolving]
